FAERS Safety Report 8203370-1 (Version None)
Quarter: 2012Q1

REPORT INFORMATION
  Report Type: 
  Country: None (occurrence: None)
  Receive Date: 20120312
  Receipt Date: 20120305
  Transmission Date: 20120608
  Serious: Yes (Hospitalization)
  Sender: FDA-Public Use
  Company Number: US-ASTRAZENECA-2012SE05173

PATIENT
  Age: 84 Year
  Sex: Female

DRUGS (3)
  1. PRILOSEC [Suspect]
     Route: 048
  2. PRILOSEC OTC [Suspect]
     Route: 048
  3. NEXIUM [Suspect]
     Route: 048

REACTIONS (6)
  - EMPHYSEMA [None]
  - MALAISE [None]
  - CARDIAC FAILURE [None]
  - DYSPNOEA [None]
  - SPEECH DISORDER [None]
  - DRUG INEFFECTIVE [None]
